FAERS Safety Report 17014779 (Version 3)
Quarter: 2022Q1

REPORT INFORMATION
  Report Type: Spontaneous
  Country: CH (occurrence: CH)
  Receive Date: 20191111
  Receipt Date: 20220201
  Transmission Date: 20220423
  Serious: Yes (Life-Threatening, Hospitalization)
  Sender: FDA-Public Use
  Company Number: CH-SM-2019-17684

PATIENT
  Age: 15 Year
  Sex: Male

DRUGS (20)
  1. IBUPROFEN [Suspect]
     Active Substance: IBUPROFEN
     Dosage: AS NECESSARY
     Route: 048
     Dates: start: 20190925
  2. IBUPROFEN [Suspect]
     Active Substance: IBUPROFEN
     Route: 048
     Dates: start: 20190619, end: 20191022
  3. VANCOMYCIN [Suspect]
     Active Substance: VANCOMYCIN
     Route: 042
     Dates: start: 20191002, end: 20191022
  4. PIPERACILLIN AND TAZOBACTAM [Suspect]
     Active Substance: PIPERACILLIN SODIUM\TAZOBACTAM SODIUM
     Route: 042
     Dates: start: 20191013, end: 20191014
  5. MEROPENEM [Suspect]
     Active Substance: MEROPENEM
     Route: 042
     Dates: start: 20191014, end: 20191018
  6. MEROPENEM [Suspect]
     Active Substance: MEROPENEM
     Route: 042
     Dates: start: 20191020
  7. ENOXAPARIN SODIUM [Suspect]
     Active Substance: ENOXAPARIN SODIUM
     Dosage: 40 MILLIGRAM DAILY; IN THE MORNING
     Route: 058
     Dates: start: 20191004, end: 20191022
  8. ESOMEPRAZOLE [Suspect]
     Active Substance: ESOMEPRAZOLE
     Dosage: 40 MILLIGRAM DAILY;
     Route: 048
     Dates: start: 20191004, end: 20191022
  9. DAFALGAN [Concomitant]
     Active Substance: ACETAMINOPHEN
     Dosage: AS NECESSARY
     Dates: end: 20191022
  10. GLUCOSE NACL [Concomitant]
  11. FLUCLOXACILLIN [Concomitant]
     Active Substance: FLUCLOXACILLIN
     Dates: start: 20190926, end: 20191002
  12. GENTAMICIN [Concomitant]
     Active Substance: GENTAMICIN
     Dates: start: 20190926, end: 20191002
  13. FOLIC ACID [Concomitant]
     Active Substance: FOLIC ACID
     Dates: start: 20191004, end: 20191022
  14. IRON POLYMALTOSE [Concomitant]
     Active Substance: IRON POLYMALTOSE
     Dates: start: 20191005, end: 20191022
  15. ASCORBIC ACID [Concomitant]
     Active Substance: ASCORBIC ACID
     Dates: start: 20191004, end: 20191022
  16. TRAMADOL [Concomitant]
     Active Substance: TRAMADOL
     Dosage: AS NECESSARY
     Dates: start: 20191015, end: 20191022
  17. TRAMADOL [Concomitant]
     Active Substance: TRAMADOL
     Dosage: IN TOTAL
     Dates: start: 20191022, end: 20191022
  18. CETIRIZINE [Concomitant]
     Active Substance: CETIRIZINE HYDROCHLORIDE
     Dosage: AS NECESSARY
     Dates: start: 20191015
  19. CETIRIZINE [Concomitant]
     Active Substance: CETIRIZINE HYDROCHLORIDE
     Dates: start: 20191015, end: 20191015
  20. CETIRIZINE [Concomitant]
     Active Substance: CETIRIZINE HYDROCHLORIDE
     Dates: start: 20191021, end: 20191021

REACTIONS (1)
  - Drug reaction with eosinophilia and systemic symptoms [Recovered/Resolved]

NARRATIVE: CASE EVENT DATE: 20191012
